FAERS Safety Report 5546759-1 (Version None)
Quarter: 2007Q4

REPORT INFORMATION
  Report Type: 
  Country: None (occurrence: None)
  Receive Date: 20071123
  Receipt Date: 20070618
  Transmission Date: 20080405
  Serious: Yes (Other)
  Sender: FDA-Public Use
  Company Number: UN-JNJFOC-20070101888

PATIENT
  Age: 66 Year
  Sex: Male

DRUGS (1)
  1. LEVAQUIN [Suspect]
     Indication: CELLULITIS
     Dosage: 250 MG, ORAL
     Route: 048
     Dates: start: 20060809, end: 20060818

REACTIONS (2)
  - OEDEMA PERIPHERAL [None]
  - TENDON RUPTURE [None]
